FAERS Safety Report 14029667 (Version 5)
Quarter: 2019Q4

REPORT INFORMATION
  Report Type: Report from Study
  Country: US (occurrence: US)
  Receive Date: 20170930
  Receipt Date: 20191227
  Transmission Date: 20200122
  Serious: Yes (Other)
  Sender: FDA-Public Use
  Company Number: US-SA-2017SA129940

PATIENT
  Age: 58 Year
  Sex: Female

DRUGS (4)
  1. MAGNESIUM [Concomitant]
     Active Substance: MAGNESIUM
     Dosage: UNK
  2. TERIFLUNOMIDE. [Suspect]
     Active Substance: TERIFLUNOMIDE
     Dosage: 7 MG, QD
     Route: 048
     Dates: start: 20170129, end: 20170226
  3. TERIFLUNOMIDE. [Suspect]
     Active Substance: TERIFLUNOMIDE
     Dosage: 14 MG, QD
     Route: 048
     Dates: start: 20170227
  4. TERIFLUNOMIDE. [Suspect]
     Active Substance: TERIFLUNOMIDE
     Indication: MULTIPLE SCLEROSIS
     Dosage: 7 MG, QD
     Route: 048
     Dates: start: 20150930

REACTIONS (8)
  - Multiple sclerosis relapse [Unknown]
  - Paraesthesia [Unknown]
  - Nasopharyngitis [Unknown]
  - Alopecia [Unknown]
  - Muscle spasms [Unknown]
  - Myalgia [Unknown]
  - Diarrhoea [Unknown]
  - Liver function test increased [Unknown]

NARRATIVE: CASE EVENT DATE: 201906
